FAERS Safety Report 8988711 (Version 1)
Quarter: 2012Q4

REPORT INFORMATION
  Report Type: 
  Country: CH (occurrence: CH)
  Receive Date: 20121228
  Receipt Date: 20121228
  Transmission Date: 20130627
  Serious: Yes (Hospitalization)
  Sender: FDA-Public Use
  Company Number: PHHY2012CH117852

PATIENT
  Age: 66 Year
  Sex: Male

DRUGS (4)
  1. CERTICAN [Suspect]
     Indication: IMMUNOSUPPRESSION
     Dosage: 3 mg BID
     Route: 048
     Dates: start: 20121019, end: 20121129
  2. PROGRAF [Concomitant]
     Indication: IMMUNOSUPPRESSION
     Route: 048
     Dates: start: 20120602, end: 20121129
  3. MYFORTIC [Concomitant]
     Indication: IMMUNOSUPPRESSION
     Dosage: 180 mg, BID
     Route: 048
     Dates: start: 2012
  4. CELLCEPT [Concomitant]
     Indication: IMMUNOSUPPRESSION

REACTIONS (4)
  - Nephrotic syndrome [Unknown]
  - Proteinuria [Unknown]
  - Oedema peripheral [Unknown]
  - Cough [Unknown]
